FAERS Safety Report 11340967 (Version 1)
Quarter: 2015Q3

REPORT INFORMATION
  Report Type: Spontaneous
  Country: US (occurrence: US)
  Receive Date: 20150805
  Receipt Date: 20150805
  Transmission Date: 20151125
  Serious: No
  Sender: FDA-Public Use
  Company Number: US-JNJFOC-20150716093

PATIENT
  Age: 20 Year
  Sex: Male
  Weight: 74.84 kg

DRUGS (1)
  1. NIZORAL A-D [Suspect]
     Active Substance: KETOCONAZOLE
     Indication: DANDRUFF
     Dosage: SIZE OF A DIME, 1X, ON 2 SEPARATE??DAYS
     Route: 061
     Dates: start: 20150420, end: 20150423

REACTIONS (6)
  - Dizziness [Not Recovered/Not Resolved]
  - Burning sensation [Not Recovered/Not Resolved]
  - Headache [Unknown]
  - Stress [Unknown]
  - Alopecia [Unknown]
  - Weight decreased [Unknown]
